FAERS Safety Report 25162547 (Version 4)
Quarter: 2025Q2

REPORT INFORMATION
  Report Type: Report from Study
  Country: CA (occurrence: CA)
  Receive Date: 20250404
  Receipt Date: 20250603
  Transmission Date: 20250716
  Serious: Yes (Hospitalization)
  Sender: JOHNSON AND JOHNSON
  Company Number: CA-JNJFOC-20250241933

PATIENT
  Age: 78 Year
  Sex: Male

DRUGS (2)
  1. SIMPONI [Suspect]
     Active Substance: GOLIMUMAB
     Indication: Rheumatoid arthritis
     Route: 058
     Dates: start: 20250128
  2. SIMPONI [Suspect]
     Active Substance: GOLIMUMAB
     Route: 058
     Dates: start: 20250128

REACTIONS (9)
  - Pneumonia bacterial [Recovering/Resolving]
  - Adverse event [Not Recovered/Not Resolved]
  - Pallor [Unknown]
  - Hot flush [Unknown]
  - Oedema [Unknown]
  - Arthralgia [Unknown]
  - Tremor [Unknown]
  - Hyperhidrosis [Unknown]
  - Drug ineffective [Unknown]

NARRATIVE: CASE EVENT DATE: 20250317
